FAERS Safety Report 8192443-8 (Version None)
Quarter: 2012Q1

REPORT INFORMATION
  Report Type: 
  Country: None (occurrence: None)
  Receive Date: 20120308
  Receipt Date: 20120305
  Transmission Date: 20120608
  Serious: No
  Sender: FDA-Public Use
  Company Number: US-BIOGENIDEC-2012BI005584

PATIENT
  Age: 46 Year
  Sex: Female

DRUGS (1)
  1. TYSABRI [Suspect]
     Indication: MULTIPLE SCLEROSIS
     Route: 042
     Dates: start: 20111014

REACTIONS (6)
  - LOSS OF CONTROL OF LEGS [None]
  - CONJUNCTIVITIS INFECTIVE [None]
  - CONTUSION [None]
  - LOSS OF CONSCIOUSNESS [None]
  - FALL [None]
  - HEAD INJURY [None]
